FAERS Safety Report 6636415-0 (Version None)
Quarter: 2010Q1

REPORT INFORMATION
  Report Type: 
  Country: None (occurrence: None)
  Receive Date: 20100311
  Receipt Date: 20100305
  Transmission Date: 20100710
  Serious: No
  Sender: FDA-Public Use
  Company Number: ALL1-2010-00178

PATIENT
  Age: 22 Year
  Sex: Female
  Weight: 56.7 kg

DRUGS (2)
  1. LIALDA [Suspect]
     Indication: COLITIS ULCERATIVE
     Dosage: 4.8, 1X/DAY:QD, ORAL
     Route: 048
     Dates: start: 20080301
  2. URSODIOL (URSODEOXYCHOLIC ACID) TABLET [Concomitant]

REACTIONS (6)
  - APHONIA [None]
  - ARTHRALGIA [None]
  - LARYNGITIS [None]
  - MIGRAINE [None]
  - MYALGIA [None]
  - VIRAL UPPER RESPIRATORY TRACT INFECTION [None]
